FAERS Safety Report 9304970 (Version 1)
Quarter: 2013Q2

REPORT INFORMATION
  Report Type: Spontaneous
  Country: US (occurrence: None)
  Receive Date: 20130521
  Receipt Date: 20130521
  Transmission Date: 20140414
  Serious: Yes (Other)
  Sender: FDA-Public Use
  Company Number: None

PATIENT
  Age: 48 Year
  Sex: Female
  Weight: 90.27 kg

DRUGS (1)
  1. AZITHROMYCIN 250 MG [Suspect]
     Indication: CYSTITIS
     Dosage: 1 DOSE DAILY PO
     Route: 048
     Dates: start: 20130515, end: 20130519

REACTIONS (6)
  - Tremor [None]
  - Body temperature decreased [None]
  - Myalgia [None]
  - Hypoaesthesia [None]
  - Paraesthesia [None]
  - Influenza [None]
